FAERS Safety Report 8977578 (Version 2)
Quarter: 2013Q1

REPORT INFORMATION
  Report Type: Spontaneous
  Country: ES (occurrence: ES)
  Receive Date: 20121220
  Receipt Date: 20130205
  Transmission Date: 20140127
  Serious: Yes (Hospitalization)
  Sender: FDA-Public Use
  Company Number: ES-ELI_LILLY_AND_COMPANY-ES201212002908

PATIENT
  Age: 77 None
  Sex: Female

DRUGS (4)
  1. FORSTEO [Suspect]
     Indication: OSTEOPOROSIS
     Dosage: 20 UG, QD
     Route: 058
     Dates: start: 20110714, end: 20121115
  2. FORSTEO [Suspect]
     Dosage: 20 UG, QD
     Route: 058
     Dates: start: 201208
  3. DAFLON [Concomitant]
     Dosage: 2 DF, QD
     Route: 048
  4. IDAPTAN [Concomitant]
     Dosage: 3 DF, QD
     Route: 048

REACTIONS (2)
  - Abdominal strangulated hernia [Recovered/Resolved]
  - Drug dose omission [Recovered/Resolved]
